FAERS Safety Report 9773760 (Version 1)
Quarter: 2013Q4

REPORT INFORMATION
  Report Type: Spontaneous
  Country: IT (occurrence: IT)
  Receive Date: 20131219
  Receipt Date: 20131219
  Transmission Date: 20140711
  Serious: Yes (Other)
  Sender: FDA-Public Use
  Company Number: IT-009507513-1312ITA007287

PATIENT
  Age: 64 Year
  Sex: Male

DRUGS (3)
  1. BETAMETHASONE [Suspect]
     Indication: TONGUE OEDEMA
     Dosage: 2MG X OS
     Route: 048
  2. LISINOPRIL [Suspect]
     Dosage: 5MG/DAY
     Route: 048
  3. ATENOLOL [Concomitant]
     Dosage: 100MG/DAY

REACTIONS (5)
  - Localised oedema [Unknown]
  - Tongue oedema [Recovering/Resolving]
  - Drug ineffective [Unknown]
  - Erythema [Unknown]
  - Angioedema [Unknown]
